FAERS Safety Report 16198647 (Version 5)
Quarter: 2019Q2

REPORT INFORMATION
  Report Type: Report from Study
  Country: CO (occurrence: CO)
  Receive Date: 20190415
  Receipt Date: 20190520
  Transmission Date: 20190711
  Serious: Yes (Death, Hospitalization)
  Sender: FDA-Public Use
  Company Number: PHHY2019CO085992

PATIENT
  Sex: Female
  Weight: 65 kg

DRUGS (5)
  1. REVOLADE [Suspect]
     Active Substance: ELTROMBOPAG
     Dosage: 150 MG, QD
     Route: 048
     Dates: end: 201902
  2. CICLOSPORIN [Suspect]
     Active Substance: CYCLOSPORINE
     Indication: BONE MARROW TRANSPLANT
  3. FOLIC ACID. [Concomitant]
     Active Substance: FOLIC ACID
     Indication: APLASTIC ANAEMIA
     Dosage: QD
     Route: 048
  4. REVOLADE [Suspect]
     Active Substance: ELTROMBOPAG
     Indication: APLASTIC ANAEMIA
     Dosage: 150 MG, QD
     Route: 048
     Dates: end: 20190130
  5. CICLOSPORIN [Suspect]
     Active Substance: CYCLOSPORINE
     Indication: APLASTIC ANAEMIA
     Route: 048

REACTIONS (2)
  - Bacterial infection [Fatal]
  - Nosocomial infection [Fatal]
